FAERS Safety Report 8459028-7 (Version None)
Quarter: 2012Q2

REPORT INFORMATION
  Report Type: 
  Country: None (occurrence: None)
  Receive Date: 20120622
  Receipt Date: 20120618
  Transmission Date: 20120825
  Serious: Yes (Other)
  Sender: FDA-Public Use
  Company Number: US-PFIZER INC-2012080369

PATIENT
  Sex: Female

DRUGS (10)
  1. THIOTHIXENE [Concomitant]
     Indication: MENTAL DISORDER
  2. LORAZEPAM [Concomitant]
     Indication: ANXIETY
     Dosage: UNK
     Dates: start: 20060101, end: 20080101
  3. CHANTIX [Suspect]
     Dosage: STARTER PACK
     Dates: start: 20081101, end: 20090101
  4. CHANTIX [Suspect]
     Dosage: STARTER PACK
     Dates: start: 20090601, end: 20090601
  5. BENZTROPINE MESYLATE [Concomitant]
     Indication: DEPRESSION
     Dosage: UNK
     Dates: start: 20060101
  6. HYDROCODONE [Concomitant]
     Indication: PAIN
     Dosage: UNK
     Dates: start: 20060101, end: 20080101
  7. CITALOPRAM [Concomitant]
     Indication: DEPRESSION
     Dosage: UNK
     Dates: start: 20060101, end: 20080101
  8. CHANTIX [Suspect]
     Indication: SMOKING CESSATION THERAPY
     Dosage: STARTER PACK
     Dates: start: 20070808, end: 20070915
  9. THIOTHIXENE [Concomitant]
     Indication: DEPRESSION
     Dosage: UNK
     Dates: start: 19950101
  10. CYCLOBENZAPRINE [Concomitant]
     Indication: MUSCLE RELAXANT THERAPY
     Dosage: UNK
     Dates: start: 20060101

REACTIONS (6)
  - BIPOLAR DISORDER [None]
  - INSOMNIA [None]
  - INTENTIONAL OVERDOSE [None]
  - SUICIDE ATTEMPT [None]
  - SUICIDAL IDEATION [None]
  - MENTAL DISORDER [None]
